FAERS Safety Report 6713203-8 (Version None)
Quarter: 2010Q2

REPORT INFORMATION
  Report Type: 
  Country: None (occurrence: None)
  Receive Date: 20100506
  Receipt Date: 20100426
  Transmission Date: 20101027
  Serious: Yes (Other)
  Sender: FDA-Public Use
  Company Number: PHHY2010US27140

PATIENT
  Sex: Female
  Weight: 56.689 kg

DRUGS (4)
  1. EXTAVIA [Suspect]
     Indication: MULTIPLE SCLEROSIS
     Dosage: 0.25 MG, QOD
     Route: 058
     Dates: start: 20100119
  2. CEPHADIN [Concomitant]
     Dosage: 1 DF, QHS
  3. BACLOFEN [Concomitant]
     Dosage: 0.5 DF IN MORNING, 1 DF AT NIGHT
  4. VERAPAMIL [Concomitant]
     Dosage: 1 IN AM AND 1 IN PM

REACTIONS (4)
  - DEPRESSION [None]
  - DISTURBANCE IN ATTENTION [None]
  - FATIGUE [None]
  - FEELING ABNORMAL [None]
